FAERS Safety Report 16843309 (Version 3)
Quarter: 2020Q4

REPORT INFORMATION
  Report Type: Spontaneous
  Country: US (occurrence: US)
  Receive Date: 20190924
  Receipt Date: 20201127
  Transmission Date: 20210113
  Serious: Yes (Other)
  Sender: FDA-Public Use
  Company Number: US-GILEAD-2019-0429345

PATIENT
  Age: 45 Year
  Sex: Male
  Weight: 68 kg

DRUGS (26)
  1. KALETRA [Concomitant]
     Active Substance: LOPINAVIR\RITONAVIR
  2. RETROVIR [Concomitant]
     Active Substance: ZIDOVUDINE
  3. AMLODIPINE [Concomitant]
     Active Substance: AMLODIPINE BESYLATE
  4. ASPIRIN 81 [Concomitant]
     Active Substance: ASPIRIN
  5. FOSRENOL [Concomitant]
     Active Substance: LANTHANUM CARBONATE
  6. AUGMENTIN S [Concomitant]
  7. PREZCOBIX [Concomitant]
     Active Substance: COBICISTAT\DARUNAVIR ETHANOLATE
  8. LOSARTAN. [Concomitant]
     Active Substance: LOSARTAN
  9. AMMONIUM LACTATE. [Concomitant]
     Active Substance: AMMONIUM LACTATE
  10. LAMIVUDINE. [Concomitant]
     Active Substance: LAMIVUDINE
  11. OMEGA 3 FISH OILS [Concomitant]
     Active Substance: OMEGA-3 FATTY ACIDS
  12. EMTRIVA [Concomitant]
     Active Substance: EMTRICITABINE
  13. PREZISTA [Concomitant]
     Active Substance: DARUNAVIR ETHANOLATE
  14. ATRIPLA [Suspect]
     Active Substance: EFAVIRENZ\EMTRICITABINE\TENOFOVIR DISOPROXIL FUMARATE
     Indication: HIV INFECTION
     Dosage: UNK
     Route: 048
     Dates: start: 2002, end: 2018
  15. HYDRALAZINE [Concomitant]
     Active Substance: HYDRALAZINE HYDROCHLORIDE
  16. ALPRAZOLAM. [Concomitant]
     Active Substance: ALPRAZOLAM
  17. SILDENAFIL 1 A PHARMA [Concomitant]
  18. DIPROLENE [Concomitant]
     Active Substance: BETAMETHASONE DIPROPIONATE
  19. FAMOTIDINE. [Concomitant]
     Active Substance: FAMOTIDINE
  20. IBUPROFEN. [Concomitant]
     Active Substance: IBUPROFEN
  21. ACETAMINOPHEN. [Concomitant]
     Active Substance: ACETAMINOPHEN
  22. NORVIR [Concomitant]
     Active Substance: RITONAVIR
  23. ALBUTEROL SULFATE. [Concomitant]
     Active Substance: ALBUTEROL SULFATE
  24. VIREAD [Suspect]
     Active Substance: TENOFOVIR DISOPROXIL FUMARATE
     Indication: HIV INFECTION
     Dosage: 300 MG
     Route: 048
     Dates: start: 2005
  25. EPIVIR [Concomitant]
     Active Substance: LAMIVUDINE
  26. ATORVASTATIN [Concomitant]
     Active Substance: ATORVASTATIN

REACTIONS (14)
  - Renal failure [Not Recovered/Not Resolved]
  - Emotional distress [Not Recovered/Not Resolved]
  - Anxiety [Not Recovered/Not Resolved]
  - Nephropathy [Unknown]
  - Loss of personal independence in daily activities [Not Recovered/Not Resolved]
  - End stage renal disease [Unknown]
  - Chronic kidney disease [Not Recovered/Not Resolved]
  - Fatigue [Unknown]
  - Pain [Not Recovered/Not Resolved]
  - Decreased activity [Not Recovered/Not Resolved]
  - Anhedonia [Not Recovered/Not Resolved]
  - Economic problem [Not Recovered/Not Resolved]
  - Illness [Unknown]
  - Quality of life decreased [Not Recovered/Not Resolved]

NARRATIVE: CASE EVENT DATE: 2007
